FAERS Safety Report 12765643 (Version 1)
Quarter: 2016Q3

REPORT INFORMATION
  Report Type: Spontaneous
  Country: US (occurrence: US)
  Receive Date: 20160915
  Receipt Date: 20160915
  Transmission Date: 20161109
  Serious: No
  Sender: FDA-Public Use
  Company Number: None

PATIENT
  Age: 83 Year
  Sex: Female

DRUGS (1)
  1. MORPHINE 10MG HOSPIRA [Suspect]
     Active Substance: MORPHINE
     Indication: COLON CANCER
     Dosage: 4 MG/HR  CONTINUOUS WITH 5MG BOLUS IV
     Route: 040
     Dates: start: 20160516, end: 20160716

REACTIONS (1)
  - Rash pruritic [None]

NARRATIVE: CASE EVENT DATE: 20160716
